FAERS Safety Report 6425383-2 (Version None)
Quarter: 2009Q4

REPORT INFORMATION
  Report Type: 
  Country: None (occurrence: None)
  Receive Date: 20091103
  Receipt Date: 20091027
  Transmission Date: 20100525
  Serious: Yes (Other)
  Sender: FDA-Public Use
  Company Number: B0601184A

PATIENT
  Sex: Female
  Weight: 84 kg

DRUGS (6)
  1. ROSIGLITAZONE [Suspect]
     Route: 048
     Dates: start: 20030423, end: 20081202
  2. AMARYL [Suspect]
     Dosage: 4MG TWICE PER DAY
     Route: 048
     Dates: start: 20081203
  3. AVANDIA [Suspect]
     Dosage: 4MG TWICE PER DAY
     Route: 048
     Dates: start: 20081203
  4. MONOPRIL [Concomitant]
     Dosage: 20MG TWICE PER DAY
     Route: 048
     Dates: start: 20081203
  5. PLENDIL [Concomitant]
     Dosage: 10MG TWICE PER DAY
     Route: 048
     Dates: start: 20081203
  6. ATENOLOL [Concomitant]
     Dosage: 100MG TWICE PER DAY
     Route: 048
     Dates: start: 20081203

REACTIONS (1)
  - RENAL CANCER [None]
